FAERS Safety Report 24019217 (Version 1)
Quarter: 2024Q2

REPORT INFORMATION
  Report Type: Spontaneous
  Country: US (occurrence: None)
  Receive Date: 20240626
  Receipt Date: 20240626
  Transmission Date: 20240716
  Serious: Yes (Death)
  Sender: FDA-Public Use
  Company Number: None

PATIENT
  Age: 84 Year
  Sex: Male

DRUGS (3)
  1. OPDIVO [Suspect]
     Active Substance: NIVOLUMAB
     Indication: Malignant melanoma
     Route: 042
     Dates: start: 20240403, end: 20240403
  2. OPDIVO [Suspect]
     Active Substance: NIVOLUMAB
     Indication: Prophylaxis
  3. AMIODARONE [Concomitant]
     Active Substance: AMIODARONE

REACTIONS (2)
  - Dyspnoea [None]
  - Cardiac failure congestive [None]

NARRATIVE: CASE EVENT DATE: 20240403
